FAERS Safety Report 8954020 (Version 2)
Quarter: 2013Q1

REPORT INFORMATION
  Report Type: Report from Study
  Country: CA (occurrence: CA)
  Receive Date: 20121207
  Receipt Date: 20130215
  Transmission Date: 20140127
  Serious: Yes (Other)
  Sender: FDA-Public Use
  Company Number: CA-ABBOTT-12P-028-1015708-00

PATIENT
  Sex: Female

DRUGS (2)
  1. HUMIRA [Suspect]
     Indication: CROHN^S DISEASE
     Dosage: LAST DOSE: 02-NOV-2012
     Route: 058
     Dates: start: 20120629, end: 201211
  2. HUMIRA [Suspect]
     Dosage: LATEST DOSE: 01 FEB 2013
     Route: 058
     Dates: start: 201212

REACTIONS (2)
  - Faecal incontinence [Unknown]
  - Alopecia [Not Recovered/Not Resolved]
